FAERS Safety Report 14366432 (Version 2)
Quarter: 2018Q1

REPORT INFORMATION
  Report Type: Report from Study
  Country: US (occurrence: US)
  Receive Date: 20180109
  Receipt Date: 20180307
  Transmission Date: 20180509
  Serious: Yes (Other)
  Sender: FDA-Public Use
  Company Number: PHEH2018US000468

PATIENT
  Sex: Female

DRUGS (3)
  1. TRILEPTAL [Suspect]
     Active Substance: OXCARBAZEPINE
     Indication: PANIC DISORDER
  2. TRILEPTAL [Suspect]
     Active Substance: OXCARBAZEPINE
     Indication: ANXIETY DISORDER
  3. TRILEPTAL [Suspect]
     Active Substance: OXCARBAZEPINE
     Indication: SEIZURE
     Dosage: 300 MG, TID
     Route: 048

REACTIONS (5)
  - Incorrect dose administered [Unknown]
  - Diabetes mellitus [Unknown]
  - Anxiety [Unknown]
  - Condition aggravated [Unknown]
  - Panic disorder [Unknown]
